FAERS Safety Report 17233218 (Version 1)
Quarter: 2020Q1

REPORT INFORMATION
  Report Type: Spontaneous
  Country: DE (occurrence: DE)
  Receive Date: 20200104
  Receipt Date: 20200104
  Transmission Date: 20200409
  Serious: Yes (Hospitalization)
  Sender: FDA-Public Use
  Company Number: DE-TEVA-2019-DE-1161178

PATIENT
  Age: 66 Year
  Sex: Male

DRUGS (8)
  1. FOLSAN 0,4MG [Concomitant]
     Dosage: 0.4 MG, 1-0-1-0
  2. RISPERIDON [Concomitant]
     Active Substance: RISPERIDONE
     Dosage: 1 MG, 0-0-1-0
  3. PANTOPRAZOL [Concomitant]
     Active Substance: PANTOPRAZOLE SODIUM
     Dosage: 40 MG, 1-0-0-0
  4. CISPLATIN. [Suspect]
     Active Substance: CISPLATIN
     Dosage: NK MG, NK
     Route: 065
  5. MELPERON [Concomitant]
     Active Substance: MELPERONE
     Dosage: 25 MG, 0-0-0-1
  6. ULTIBRO BREEZHALER [Concomitant]
     Active Substance: GLYCOPYRRONIUM\INDACATEROL
     Dosage: NK MG, 1-0-0-0
  7. PEMBROLIZUMAB. [Suspect]
     Active Substance: PEMBROLIZUMAB
     Dosage: NK MG, NK
     Route: 065
  8. PEMETREXED. [Suspect]
     Active Substance: PEMETREXED
     Dosage: NK MG, NK
     Route: 065

REACTIONS (3)
  - Abdominal pain [Unknown]
  - Constipation [Unknown]
  - General physical health deterioration [Unknown]
